FAERS Safety Report 9315437 (Version 1)
Quarter: 2013Q2

REPORT INFORMATION
  Report Type: Spontaneous
  Country: US (occurrence: US)
  Receive Date: 20130529
  Receipt Date: 20130529
  Transmission Date: 20140414
  Serious: No
  Sender: FDA-Public Use
  Company Number: US-ASTRAZENECA-2013SE34797

PATIENT
  Sex: Female

DRUGS (2)
  1. CRESTOR [Suspect]
     Route: 048
  2. ATORVASTATIN [Suspect]
     Route: 065

REACTIONS (3)
  - Amnesia [Unknown]
  - Cognitive disorder [Unknown]
  - Intentional drug misuse [Unknown]
